FAERS Safety Report 14713953 (Version 1)
Quarter: 2018Q2

REPORT INFORMATION
  Report Type: Spontaneous
  Country: US (occurrence: US)
  Receive Date: 20180404
  Receipt Date: 20180404
  Transmission Date: 20180711
  Serious: No
  Sender: FDA-Public Use
  Company Number: US-BAYER-2018-055459

PATIENT
  Age: 75 Year
  Sex: Male
  Weight: 74 kg

DRUGS (2)
  1. MIRALAX [Suspect]
     Active Substance: POLYETHYLENE GLYCOL 3350
     Indication: RADIOTHERAPY
     Dosage: 1 CAPFUL DAILY DOSE
     Route: 048
     Dates: start: 20180320
  2. MIRALAX [Suspect]
     Active Substance: POLYETHYLENE GLYCOL 3350
     Indication: RADIOTHERAPY
     Dosage: 1 CAPFUL DAILY DOSE
     Route: 048
     Dates: start: 20180307, end: 20180319

REACTIONS (3)
  - Off label use [Recovering/Resolving]
  - Expired product administered [Unknown]
  - Product use in unapproved indication [Unknown]

NARRATIVE: CASE EVENT DATE: 20180307
